FAERS Safety Report 12681479 (Version 1)
Quarter: 2016Q3

REPORT INFORMATION
  Report Type: Spontaneous
  Country: US (occurrence: US)
  Receive Date: 20160824
  Receipt Date: 20160824
  Transmission Date: 20161109
  Serious: No
  Sender: FDA-Public Use
  Company Number: US-FRI-1000082078

PATIENT
  Age: 17 Year
  Sex: Female

DRUGS (4)
  1. LEXAPRO [Suspect]
     Active Substance: ESCITALOPRAM OXALATE
     Dosage: 20MG
     Route: 048
     Dates: start: 20151216
  2. VYVANSE [Concomitant]
     Active Substance: LISDEXAMFETAMINE DIMESYLATE
  3. ACCUTANE [Suspect]
     Active Substance: ISOTRETINOIN
  4. LEXAPRO [Suspect]
     Active Substance: ESCITALOPRAM OXALATE
     Indication: MAJOR DEPRESSION
     Dosage: 10MG
     Route: 048
     Dates: start: 201510, end: 201512

REACTIONS (1)
  - Alopecia [Not Recovered/Not Resolved]
